FAERS Safety Report 8829329 (Version 1)
Quarter: 2012Q4

REPORT INFORMATION
  Report Type: 
  Country: US (occurrence: US)
  Receive Date: 20121009
  Receipt Date: 20121009
  Transmission Date: 20130627
  Serious: No
  Sender: FDA-Public Use
  Company Number: US-009507513-1210USA001533

PATIENT
  Age: 40 Year
  Sex: Male

DRUGS (3)
  1. ISENTRESS [Suspect]
     Dosage: UNK
     Route: 048
     Dates: start: 2008, end: 201209
  2. TRUVADA [Concomitant]
     Dosage: UNK
     Dates: start: 2008
  3. VIRAMUNE [Concomitant]
     Dosage: UNK
     Dates: start: 2008

REACTIONS (2)
  - Pain [Unknown]
  - Muscle spasms [Unknown]
